FAERS Safety Report 5188847-8 (Version None)
Quarter: 2006Q4

REPORT INFORMATION
  Report Type: 
  Country: None (occurrence: None)
  Receive Date: 20061221
  Receipt Date: 20061218
  Transmission Date: 20070319
  Serious: Yes (Other)
  Sender: FDA-Public Use
  Company Number: DE-ROXANE LABORATORIES, INC-2006-BP-14662RO

PATIENT
  Age: 54 Year
  Sex: Male

DRUGS (7)
  1. DIAZEPAM [Suspect]
     Indication: MAJOR DEPRESSION
     Dosage: TOTAL CUMULATIVE DOSE = 325MG
  2. MIRTAZAPINE [Suspect]
     Indication: MAJOR DEPRESSION
     Dosage: TOTAL CUMULATIVE DOSE = 1100MG
  3. TILIDINE [Suspect]
     Indication: MAJOR DEPRESSION
     Dosage: TOTAL CUMULATIVE DOSE = 1400MG
  4. PERAZINE [Suspect]
     Indication: MAJOR DEPRESSION
     Dosage: TOTAL CUMULATIVE DOSE = 1800MG
  5. RISPERIDONE [Suspect]
     Indication: MAJOR DEPRESSION
     Dosage: TOTAL CUMULATIVE DOSE = 176MG
  6. MOCLOBEMIDE [Suspect]
     Indication: MAJOR DEPRESSION
     Dosage: TOTAL CUMULATIVE DOSE = 6750MG
  7. MAPROTILINE [Suspect]
     Indication: MAJOR DEPRESSION
     Dosage: TOTAL CUMULATIVE DOSE = 900MG
     Route: 042

REACTIONS (4)
  - COGNITIVE DISORDER [None]
  - CONFUSIONAL STATE [None]
  - CSF PROTEIN INCREASED [None]
  - MEMORY IMPAIRMENT [None]
